FAERS Safety Report 6687598-8 (Version None)
Quarter: 2010Q2

REPORT INFORMATION
  Report Type: 
  Country: None (occurrence: None)
  Receive Date: 20100416
  Receipt Date: 20100416
  Transmission Date: 20101027
  Serious: No
  Sender: FDA-Public Use
  Company Number: None

PATIENT
  Age: 47 Year
  Sex: Female
  Weight: 63.5036 kg

DRUGS (1)
  1. DOXYCYCLINE [Suspect]
     Indication: ROSACEA
     Dosage: 1 2X DAY PO
     Route: 048
     Dates: start: 20100405, end: 20100410

REACTIONS (3)
  - ERYTHEMA [None]
  - HEADACHE [None]
  - LYMPHADENOPATHY [None]
